FAERS Safety Report 6107147-2 (Version None)
Quarter: 2009Q1

REPORT INFORMATION
  Report Type: 
  Country: None (occurrence: None)
  Receive Date: 20090309
  Receipt Date: 20090227
  Transmission Date: 20090719
  Serious: Yes (Hospitalization)
  Sender: FDA-Public Use
  Company Number: US-BIOGENIDEC-2008BI032110

PATIENT
  Age: 63 Year
  Sex: Female

DRUGS (8)
  1. AVONEX [Suspect]
     Indication: MULTIPLE SCLEROSIS
     Route: 030
     Dates: start: 20040201
  2. XANAX [Concomitant]
     Indication: DRUG USE FOR UNKNOWN INDICATION
  3. PROZAC [Concomitant]
     Indication: DRUG USE FOR UNKNOWN INDICATION
  4. ZANAFLEX [Concomitant]
     Indication: MUSCLE SPASTICITY
  5. BACLOFEN [Concomitant]
     Indication: DRUG USE FOR UNKNOWN INDICATION
  6. TEGRETOL [Concomitant]
     Indication: DRUG USE FOR UNKNOWN INDICATION
  7. LORCET-HD [Concomitant]
     Indication: DRUG USE FOR UNKNOWN INDICATION
  8. RESTORIL [Concomitant]
     Indication: DRUG USE FOR UNKNOWN INDICATION

REACTIONS (11)
  - BALANCE DISORDER [None]
  - CEREBELLAR ATAXIA [None]
  - CEREBROVASCULAR ACCIDENT [None]
  - DYSARTHRIA [None]
  - DYSPHONIA [None]
  - GAIT DISTURBANCE [None]
  - HYPERREFLEXIA [None]
  - NYSTAGMUS [None]
  - OPHTHALMOPLEGIA [None]
  - OPTICOKINETIC NYSTAGMUS TESTS ABNORMAL [None]
  - VISUAL ACUITY REDUCED [None]
